FAERS Safety Report 6393644-1 (Version None)
Quarter: 2009Q4

REPORT INFORMATION
  Report Type: 
  Country: None (occurrence: None)
  Receive Date: 20091008
  Receipt Date: 20090929
  Transmission Date: 20100525
  Serious: Yes (Hospitalization, Other)
  Sender: FDA-Public Use
  Company Number: FI-JNJFOC-20040603948

PATIENT
  Age: 46 Year
  Sex: Female
  Weight: 58 kg

DRUGS (4)
  1. ACETAMINOPHEN [Suspect]
     Route: 048
  2. ACETAMINOPHEN [Suspect]
     Indication: SUICIDE ATTEMPT
     Route: 048
  3. TIZANIDINE HCL [Suspect]
     Indication: DRUG USE FOR UNKNOWN INDICATION
     Route: 048
  4. ALCOHOL [Suspect]
     Indication: DRUG USE FOR UNKNOWN INDICATION

REACTIONS (9)
  - BLOOD BILIRUBIN INCREASED [None]
  - BLOOD PH INCREASED [None]
  - BLOOD THROMBOPLASTIN DECREASED [None]
  - HEPATIC NECROSIS [None]
  - HEPATIC STEATOSIS [None]
  - OVERDOSE [None]
  - PLATELET COUNT DECREASED [None]
  - TRANSAMINASES INCREASED [None]
  - VOMITING [None]
